FAERS Safety Report 5155457-8 (Version None)
Quarter: 2006Q4

REPORT INFORMATION
  Report Type: 
  Country: None (occurrence: None)
  Receive Date: 20061114
  Receipt Date: 20061027
  Transmission Date: 20070319
  Serious: Yes (Hospitalization)
  Sender: FDA-Public Use
  Company Number: 06-001279

PATIENT
  Age: 52 Year
  Sex: Female

DRUGS (4)
  1. DURICEF [Suspect]
     Dosage: 500 MG, BID, ORAL
     Route: 048
     Dates: start: 20060803, end: 20060804
  2. CALCIUM CARBONATE (CALCIUM CARBONATE) [Concomitant]
  3. PARAMAX [Concomitant]
  4. CODEINE PHOSPHATE                          (CODEINE PHOSPHATE) [Concomitant]

REACTIONS (2)
  - RASH GENERALISED [None]
  - SWELLING [None]
